FAERS Safety Report 12540346 (Version 1)
Quarter: 2016Q3

REPORT INFORMATION
  Report Type: Spontaneous
  Country: US (occurrence: None)
  Receive Date: 20160707
  Receipt Date: 20160707
  Transmission Date: 20161109
  Serious: Yes (Hospitalization)
  Sender: FDA-Public Use
  Company Number: None

PATIENT
  Age: 77 Year
  Sex: Female

DRUGS (9)
  1. TASIGNA [Suspect]
     Active Substance: NILOTINIB
     Indication: ANAEMIA
     Route: 048
     Dates: start: 20120504
  2. TASIGNA [Suspect]
     Active Substance: NILOTINIB
     Indication: CHRONIC KIDNEY DISEASE
     Route: 048
     Dates: start: 20120504
  3. METOPROLOL. [Concomitant]
     Active Substance: METOPROLOL
  4. O-ENALAPRIL [Concomitant]
  5. HYDRALAZINE [Concomitant]
     Active Substance: HYDRALAZINE HYDROCHLORIDE
  6. LOSARTAN. [Concomitant]
     Active Substance: LOSARTAN
  7. AMLODOPINE [Concomitant]
     Active Substance: AMLODIPINE BESYLATE
  8. PROCRIT [Concomitant]
     Active Substance: ERYTHROPOIETIN
  9. ISOSORBIDE. [Concomitant]
     Active Substance: ISOSORBIDE

REACTIONS (1)
  - Myocardial infarction [None]

NARRATIVE: CASE EVENT DATE: 20160522
